FAERS Safety Report 16649896 (Version 3)
Quarter: 2023Q1

REPORT INFORMATION
  Report Type: Spontaneous
  Country: US (occurrence: None)
  Receive Date: 20190731
  Receipt Date: 20230329
  Transmission Date: 20230418
  Serious: Yes (Hospitalization, Other)
  Sender: FDA-Public Use
  Company Number: 2019SF06236

PATIENT
  Age: 26910 Day
  Sex: Female
  Weight: 70.8 kg

DRUGS (84)
  1. NEXIUM [Suspect]
     Active Substance: ESOMEPRAZOLE MAGNESIUM
     Indication: Gastrooesophageal reflux disease
     Route: 048
     Dates: start: 20080918, end: 20171126
  2. NEXIUM [Suspect]
     Active Substance: ESOMEPRAZOLE MAGNESIUM
     Indication: Abdominal discomfort
     Route: 048
     Dates: start: 20080918, end: 20171126
  3. NEXIUM [Suspect]
     Active Substance: ESOMEPRAZOLE MAGNESIUM
     Indication: Gastric ulcer
     Route: 048
     Dates: start: 20080918, end: 20171126
  4. NEXIUM [Suspect]
     Active Substance: ESOMEPRAZOLE MAGNESIUM
     Indication: Gastrooesophageal reflux disease
     Route: 048
     Dates: start: 20080918, end: 20081017
  5. NEXIUM [Suspect]
     Active Substance: ESOMEPRAZOLE MAGNESIUM
     Indication: Abdominal discomfort
     Route: 048
     Dates: start: 20080918, end: 20081017
  6. NEXIUM [Suspect]
     Active Substance: ESOMEPRAZOLE MAGNESIUM
     Indication: Gastric ulcer
     Route: 048
     Dates: start: 20080918, end: 20081017
  7. NEXIUM [Suspect]
     Active Substance: ESOMEPRAZOLE MAGNESIUM
     Indication: Gastrooesophageal reflux disease
     Dosage: GENERIC
     Route: 065
     Dates: start: 200001, end: 201612
  8. NEXIUM [Suspect]
     Active Substance: ESOMEPRAZOLE MAGNESIUM
     Indication: Abdominal discomfort
     Dosage: GENERIC
     Route: 065
     Dates: start: 200001, end: 201612
  9. NEXIUM [Suspect]
     Active Substance: ESOMEPRAZOLE MAGNESIUM
     Indication: Gastric ulcer
     Dosage: GENERIC
     Route: 065
     Dates: start: 200001, end: 201612
  10. NEXIUM 24HR [Suspect]
     Active Substance: ESOMEPRAZOLE MAGNESIUM
     Route: 048
  11. PRILOSEC [Suspect]
     Active Substance: OMEPRAZOLE MAGNESIUM
     Indication: Gastrooesophageal reflux disease
     Route: 048
     Dates: start: 20080918, end: 20171126
  12. PRILOSEC [Suspect]
     Active Substance: OMEPRAZOLE MAGNESIUM
     Indication: Abdominal discomfort
     Route: 048
     Dates: start: 20080918, end: 20171126
  13. PRILOSEC [Suspect]
     Active Substance: OMEPRAZOLE MAGNESIUM
     Indication: Gastric ulcer
     Route: 048
     Dates: start: 20080918, end: 20171126
  14. PRILOSEC [Suspect]
     Active Substance: OMEPRAZOLE MAGNESIUM
     Indication: Gastrooesophageal reflux disease
     Dosage: GENERIC
     Route: 065
     Dates: start: 20111231, end: 20140514
  15. PRILOSEC [Suspect]
     Active Substance: OMEPRAZOLE MAGNESIUM
     Indication: Abdominal discomfort
     Dosage: GENERIC
     Route: 065
     Dates: start: 20111231, end: 20140514
  16. PRILOSEC [Suspect]
     Active Substance: OMEPRAZOLE MAGNESIUM
     Indication: Gastric ulcer
     Dosage: GENERIC
     Route: 065
     Dates: start: 20111231, end: 20140514
  17. PRILOSEC [Suspect]
     Active Substance: OMEPRAZOLE MAGNESIUM
     Indication: Gastrooesophageal reflux disease
     Dosage: GENERIC
     Route: 065
     Dates: start: 20161027, end: 20171126
  18. PRILOSEC [Suspect]
     Active Substance: OMEPRAZOLE MAGNESIUM
     Indication: Abdominal discomfort
     Dosage: GENERIC
     Route: 065
     Dates: start: 20161027, end: 20171126
  19. PRILOSEC [Suspect]
     Active Substance: OMEPRAZOLE MAGNESIUM
     Indication: Gastric ulcer
     Dosage: GENERIC
     Route: 065
     Dates: start: 20161027, end: 20171126
  20. PRILOSEC [Suspect]
     Active Substance: OMEPRAZOLE MAGNESIUM
     Indication: Gastrooesophageal reflux disease
     Dosage: GENERIC
     Route: 065
     Dates: start: 20120409, end: 20121203
  21. PRILOSEC [Suspect]
     Active Substance: OMEPRAZOLE MAGNESIUM
     Indication: Abdominal discomfort
     Dosage: GENERIC
     Route: 065
     Dates: start: 20120409, end: 20121203
  22. PRILOSEC [Suspect]
     Active Substance: OMEPRAZOLE MAGNESIUM
     Indication: Gastric ulcer
     Dosage: GENERIC
     Route: 065
     Dates: start: 20120409, end: 20121203
  23. PRILOSEC [Suspect]
     Active Substance: OMEPRAZOLE MAGNESIUM
     Indication: Gastrooesophageal reflux disease
     Dosage: GENERIC
     Route: 065
     Dates: start: 201001, end: 201812
  24. PRILOSEC [Suspect]
     Active Substance: OMEPRAZOLE MAGNESIUM
     Indication: Abdominal discomfort
     Dosage: GENERIC
     Route: 065
     Dates: start: 201001, end: 201812
  25. PRILOSEC [Suspect]
     Active Substance: OMEPRAZOLE MAGNESIUM
     Indication: Gastric ulcer
     Dosage: GENERIC
     Route: 065
     Dates: start: 201001, end: 201812
  26. PRILOSEC OTC [Suspect]
     Active Substance: OMEPRAZOLE MAGNESIUM
     Route: 048
     Dates: start: 20080918, end: 20171126
  27. PROTONIX [Suspect]
     Active Substance: PANTOPRAZOLE SODIUM
     Indication: Gastrooesophageal reflux disease
     Route: 065
     Dates: start: 20080918, end: 20171126
  28. PROTONIX [Suspect]
     Active Substance: PANTOPRAZOLE SODIUM
     Indication: Abdominal discomfort
     Route: 065
     Dates: start: 20080918, end: 20171126
  29. PROTONIX [Suspect]
     Active Substance: PANTOPRAZOLE SODIUM
     Indication: Gastric ulcer
     Route: 065
     Dates: start: 20080918, end: 20171126
  30. PROTONIX [Suspect]
     Active Substance: PANTOPRAZOLE SODIUM
     Indication: Gastrooesophageal reflux disease
     Route: 065
     Dates: start: 20140929, end: 20151230
  31. PROTONIX [Suspect]
     Active Substance: PANTOPRAZOLE SODIUM
     Indication: Abdominal discomfort
     Route: 065
     Dates: start: 20140929, end: 20151230
  32. PROTONIX [Suspect]
     Active Substance: PANTOPRAZOLE SODIUM
     Indication: Gastric ulcer
     Route: 065
     Dates: start: 20140929, end: 20151230
  33. PROTONIX [Suspect]
     Active Substance: PANTOPRAZOLE SODIUM
     Indication: Gastrooesophageal reflux disease
     Route: 065
     Dates: start: 200001, end: 201612
  34. PROTONIX [Suspect]
     Active Substance: PANTOPRAZOLE SODIUM
     Indication: Abdominal discomfort
     Route: 065
     Dates: start: 200001, end: 201612
  35. PROTONIX [Suspect]
     Active Substance: PANTOPRAZOLE SODIUM
     Indication: Gastric ulcer
     Route: 065
     Dates: start: 200001, end: 201612
  36. PROTONIX [Suspect]
     Active Substance: PANTOPRAZOLE SODIUM
     Indication: Gastrooesophageal reflux disease
     Route: 065
  37. PROTONIX [Suspect]
     Active Substance: PANTOPRAZOLE SODIUM
     Indication: Abdominal discomfort
     Route: 065
  38. PROTONIX [Suspect]
     Active Substance: PANTOPRAZOLE SODIUM
     Indication: Gastric ulcer
     Route: 065
  39. DIOVAN [Concomitant]
     Active Substance: VALSARTAN
  40. MOBIC [Concomitant]
     Active Substance: MELOXICAM
  41. ALEVE [Concomitant]
     Active Substance: NAPROXEN SODIUM
  42. FUROSEMIDE [Concomitant]
     Active Substance: FUROSEMIDE
  43. CORTEF [Concomitant]
     Active Substance: HYDROCORTISONE
  44. ACETAMINOPHEN\HYDROCODONE BITARTRATE [Concomitant]
     Active Substance: ACETAMINOPHEN\HYDROCODONE BITARTRATE
  45. ROBAXIN [Concomitant]
     Active Substance: METHOCARBAMOL
  46. AMLODIPINE BESYLATE [Concomitant]
     Active Substance: AMLODIPINE BESYLATE
  47. CIPRO [Concomitant]
     Active Substance: CIPROFLOXACIN HYDROCHLORIDE
  48. GABAPENTIN [Concomitant]
     Active Substance: GABAPENTIN
  49. FLEXERIL [Concomitant]
     Active Substance: CYCLOBENZAPRINE HYDROCHLORIDE
  50. SYNTHROID [Concomitant]
     Active Substance: LEVOTHYROXINE SODIUM
  51. PYRIDIUM [Concomitant]
     Active Substance: PHENAZOPYRIDINE
  52. XANAX [Concomitant]
     Active Substance: ALPRAZOLAM
  53. LABETALOL [Concomitant]
     Active Substance: LABETALOL\LABETALOL HYDROCHLORIDE
  54. CREON [Concomitant]
     Active Substance: PANCRELIPASE AMYLASE\PANCRELIPASE LIPASE\PANCRELIPASE PROTEASE
  55. CELEBREX [Concomitant]
     Active Substance: CELECOXIB
  56. FOSAMAX [Concomitant]
     Active Substance: ALENDRONATE SODIUM
  57. ALDACTONE [Concomitant]
     Active Substance: SPIRONOLACTONE
  58. DILACOR XR [Concomitant]
     Active Substance: DILTIAZEM HYDROCHLORIDE
  59. OXYCONTIN [Concomitant]
     Active Substance: OXYCODONE HYDROCHLORIDE
  60. VENLAFAXINE [Concomitant]
     Active Substance: VENLAFAXINE HYDROCHLORIDE
  61. HYDROXYZINE [Concomitant]
     Active Substance: HYDROXYZINE HYDROCHLORIDE
  62. ACTONEL [Concomitant]
     Active Substance: RISEDRONATE SODIUM
  63. NITROFURANTOIN [Concomitant]
     Active Substance: NITROFURANTOIN
  64. ZOLPIDEM [Concomitant]
     Active Substance: ZOLPIDEM TARTRATE
  65. DIAZEPAM [Concomitant]
     Active Substance: DIAZEPAM
  66. PROMETHAZINE [Concomitant]
     Active Substance: PROMETHAZINE HYDROCHLORIDE
  67. ACULAR [Concomitant]
     Active Substance: KETOROLAC TROMETHAMINE
  68. LIDODERM [Concomitant]
     Active Substance: LIDOCAINE
  69. ROCEPHIN [Concomitant]
     Active Substance: CEFTRIAXONE SODIUM
  70. VOLTAREN [Concomitant]
     Active Substance: DICLOFENAC SODIUM
  71. VALACYCLOVIR [Concomitant]
     Active Substance: VALACYCLOVIR HYDROCHLORIDE
  72. AVELOX [Concomitant]
     Active Substance: MOXIFLOXACIN HYDROCHLORIDE
  73. BACTRIM [Concomitant]
     Active Substance: SULFAMETHOXAZOLE\TRIMETHOPRIM
  74. SOLU-MEDROL [Concomitant]
     Active Substance: METHYLPREDNISOLONE SODIUM SUCCINATE
  75. TYLENOL [Concomitant]
     Active Substance: ACETAMINOPHEN
  76. POTASSIUM CHLORIDE [Concomitant]
     Active Substance: POTASSIUM CHLORIDE
  77. MOXIFLOXACIN [Concomitant]
     Active Substance: MOXIFLOXACIN
  78. LOPERAMIDE [Concomitant]
     Active Substance: LOPERAMIDE
  79. ZOFRAN [Concomitant]
     Active Substance: ONDANSETRON HYDROCHLORIDE
  80. ROBITUSSIN (GUAIFENESIN) [Concomitant]
     Active Substance: GUAIFENESIN
  81. DARVOCET [Concomitant]
     Active Substance: ACETAMINOPHEN\PROPOXYPHENE HYDROCHLORIDE
  82. DEXTROSE [Concomitant]
     Active Substance: DEXTROSE
  83. LOSARTAN [Concomitant]
     Active Substance: LOSARTAN
  84. HYDROCODONE BITARTRATE [Concomitant]
     Active Substance: HYDROCODONE BITARTRATE

REACTIONS (3)
  - Chronic kidney disease [Not Recovered/Not Resolved]
  - Renal failure [Unknown]
  - Acute kidney injury [Unknown]

NARRATIVE: CASE EVENT DATE: 20111221
